FAERS Safety Report 8343440-0 (Version None)
Quarter: 2012Q2

REPORT INFORMATION
  Report Type: 
  Country: None (occurrence: None)
  Receive Date: 20120508
  Receipt Date: 20120425
  Transmission Date: 20120825
  Serious: Yes (Hospitalization)
  Sender: FDA-Public Use
  Company Number: FR-AMGEN-FRASP2012027583

PATIENT
  Age: 62 Year
  Sex: Female

DRUGS (11)
  1. FIXICAL [Concomitant]
     Dosage: UNK UNK, UNK
  2. FLUTICASONE PROPIONATE/SALMETEROL [Concomitant]
     Dosage: UNK UNK, UNK
  3. ENBREL [Suspect]
     Indication: RHEUMATOID ARTHRITIS
     Dosage: UNK
     Route: 058
     Dates: start: 20100215, end: 20111216
  4. VITAMIN D [Concomitant]
     Dosage: UNK UNK, UNK
  5. LANSOPRAZOLE [Concomitant]
     Dosage: UNK UNK, UNK
  6. METHOTREXATE [Suspect]
     Indication: RHEUMATOID ARTHRITIS
     Dosage: UNK
     Route: 048
     Dates: start: 20051201, end: 20120214
  7. HUMIRA [Suspect]
     Indication: RHEUMATOID ARTHRITIS
     Dosage: UNK
     Route: 058
     Dates: start: 20061201, end: 20070801
  8. MELOXICAM [Concomitant]
     Dosage: UNK UNK, UNK
  9. FERROUS SULFATE TAB [Concomitant]
     Dosage: UNK UNK, UNK
  10. COAPROVEL [Concomitant]
     Dosage: UNK UNK, UNK
  11. ZINC SULFATE [Concomitant]
     Dosage: UNK UNK, UNK

REACTIONS (2)
  - DRUG INEFFECTIVE [None]
  - OVARIAN CANCER [None]
